FAERS Safety Report 9587199 (Version 4)
Quarter: 2014Q1

REPORT INFORMATION
  Report Type: Spontaneous
  Country: US (occurrence: US)
  Receive Date: 20131003
  Receipt Date: 20140303
  Transmission Date: 20141002
  Serious: Yes (Other)
  Sender: FDA-Public Use
  Company Number: US-GLAXOSMITHKLINE-A1043473A

PATIENT
  Age: 83 Year
  Sex: Female

DRUGS (8)
  1. VENTOLIN [Suspect]
     Indication: PRODUCT USED FOR UNKNOWN INDICATION
     Dosage: 2PUFF AS REQUIRED
     Route: 055
  2. NEXIUM [Concomitant]
  3. THYROID MEDICATION [Concomitant]
  4. AMITIZA [Concomitant]
  5. WARFARIN [Concomitant]
  6. GLIPIZIDE [Concomitant]
  7. SIMVASTATIN [Concomitant]
  8. HEART MEDICATION [Concomitant]

REACTIONS (2)
  - Macular degeneration [Recovered/Resolved]
  - Product quality issue [Unknown]
